FAERS Safety Report 19953307 (Version 1)
Quarter: 2021Q4

REPORT INFORMATION
  Report Type: Spontaneous
  Country: US (occurrence: US)
  Receive Date: 20211012
  Receipt Date: 20211012
  Transmission Date: 20220304
  Serious: No
  Sender: FDA-Public Use
  Company Number: None

PATIENT
  Age: 74 Year
  Sex: Male
  Weight: 118 kg

DRUGS (1)
  1. TOCILIZUMAB [Suspect]
     Active Substance: TOCILIZUMAB
     Indication: COVID-19
     Dosage: ?          OTHER ROUTE:IV
     Dates: start: 20210825, end: 20210825

REACTIONS (2)
  - Gastric haemorrhage [None]
  - Sepsis [None]

NARRATIVE: CASE EVENT DATE: 20210901
